FAERS Safety Report 6361728-X (Version None)
Quarter: 2009Q3

REPORT INFORMATION
  Report Type: 
  Country: None (occurrence: None)
  Receive Date: 20090918
  Receipt Date: 20090910
  Transmission Date: 20100115
  Serious: Yes (Hospitalization)
  Sender: FDA-Public Use
  Company Number: ES-PFIZER INC-2009249089

PATIENT
  Age: 79 Year

DRUGS (13)
  1. ALDACTONE [Suspect]
     Indication: HYPERTENSION
     Dosage: 50 MG, 1X/DAY
     Route: 048
     Dates: start: 20090101, end: 20090420
  2. BOI K [Suspect]
     Dosage: 10 MG, 1X/DAY
     Route: 048
     Dates: start: 20090101, end: 20090420
  3. AMIODARONE HCL [Suspect]
     Indication: ATRIAL FIBRILLATION
     Dosage: 200 MG, 1X/DAY
     Route: 048
     Dates: start: 20090101, end: 20090420
  4. FUROSEMIDE [Concomitant]
     Indication: CARDIAC FAILURE
     Dosage: 40 MG, 1X/DAY
     Route: 048
     Dates: start: 20090101
  5. OMEPRAZOL [Concomitant]
     Dosage: UNK
     Dates: start: 20090101
  6. ADIRO [Concomitant]
     Dosage: 300 MG, 1X/DAY
     Route: 048
     Dates: start: 20090101
  7. COROPRES [Concomitant]
     Indication: HYPERTENSION
     Dosage: 12.5 MG, 1X/DAY
     Route: 048
     Dates: start: 20090101
  8. METFORMIN HCL [Concomitant]
     Indication: TYPE 2 DIABETES MELLITUS
     Dosage: UNK G, 1X/DAY
     Route: 048
     Dates: start: 20090101
  9. ATORVASTATIN [Concomitant]
     Indication: DYSLIPIDAEMIA
     Dosage: 40 MG, 1X/DAY
     Route: 048
     Dates: start: 20090101
  10. INSULATARD [Concomitant]
     Indication: TYPE 2 DIABETES MELLITUS
     Dosage: 12 IU, 1X/DAY
     Dates: start: 20090101
  11. SINTROM [Concomitant]
     Indication: CARDIAC VALVE PROSTHESIS USER
     Dosage: UNK
     Route: 048
     Dates: start: 20090101
  12. STILNOX [Concomitant]
     Dosage: 10 MG, 1X/DAY
     Route: 048
     Dates: start: 20090101
  13. TARDYFERON [Concomitant]
     Dosage: 256 MG, 1X/DAY
     Route: 048
     Dates: start: 20090101

REACTIONS (3)
  - ATRIOVENTRICULAR BLOCK [None]
  - HYPERKALAEMIA [None]
  - RENAL FAILURE ACUTE [None]
